FAERS Safety Report 6020141-5 (Version None)
Quarter: 2008Q4

REPORT INFORMATION
  Report Type: 
  Country: None (occurrence: None)
  Receive Date: 20081223
  Receipt Date: 20081223
  Transmission Date: 20090506
  Serious: Yes (Other)
  Sender: FDA-Public Use
  Company Number: None

PATIENT
  Age: 63 Year
  Sex: Female

DRUGS (2)
  1. ESTRO/METH HS [Suspect]
     Indication: HOT FLUSH
     Dosage: TAKE 1 TABLET BY MOUTH DAILY (DURATION: PT. SAYS SHE HAS BEEN ON FOR YEARS-THIS IS THE FIRST TIME WI
     Route: 048
  2. ESTRATEST H.S. [Suspect]

REACTIONS (3)
  - HOT FLUSH [None]
  - NAUSEA [None]
  - PRODUCT QUALITY ISSUE [None]
